FAERS Safety Report 18562633 (Version 1)
Quarter: 2020Q4

REPORT INFORMATION
  Report Type: Spontaneous
  Country: US (occurrence: US)
  Receive Date: 20201130
  Receipt Date: 20201130
  Transmission Date: 20210114
  Serious: No
  Sender: FDA-Public Use
  Company Number: US-ROCHE-2559202

PATIENT
  Sex: Female

DRUGS (11)
  1. OLMESARTAN MEDOXOMIL. [Concomitant]
     Active Substance: OLMESARTAN MEDOXOMIL
  2. ROSUVASTATIN CALCIUM. [Concomitant]
     Active Substance: ROSUVASTATIN CALCIUM
  3. TRESIBA [Concomitant]
     Active Substance: INSULIN DEGLUDEC
  4. FUROSEMIDE. [Concomitant]
     Active Substance: FUROSEMIDE
  5. METFORMIN HYDROCHLORIDE. [Concomitant]
     Active Substance: METFORMIN HYDROCHLORIDE
     Dosage: ONGOING: UNKNOWN
  6. CLONIDINE HCL [Concomitant]
     Active Substance: CLONIDINE HYDROCHLORIDE
  7. LUCENTIS [Suspect]
     Active Substance: RANIBIZUMAB
     Indication: INJURY OF CONJUNCTIVA
     Dosage: LUCENTIS 0.3 MG 0.05 ML
     Route: 050
  8. SYMBICORT [Concomitant]
     Active Substance: BUDESONIDE\FORMOTEROL FUMARATE DIHYDRATE
  9. LUCENTIS [Suspect]
     Active Substance: RANIBIZUMAB
     Indication: CORNEAL ABRASION
  10. GLIPIZIDE. [Concomitant]
     Active Substance: GLIPIZIDE
  11. LABETALOL HCL [Concomitant]
     Active Substance: LABETALOL HYDROCHLORIDE

REACTIONS (3)
  - Blood glucose increased [Unknown]
  - Off label use [Unknown]
  - Intentional product use issue [Unknown]
